APPROVED DRUG PRODUCT: HYDROCHLOROTHIAZIDE
Active Ingredient: HYDROCHLOROTHIAZIDE
Strength: 50MG/5ML
Dosage Form/Route: SOLUTION;ORAL
Application: A089661 | Product #001
Applicant: MORTON GROVE PHARMACEUTICALS INC
Approved: Jun 20, 1988 | RLD: No | RS: No | Type: DISCN